FAERS Safety Report 17586745 (Version 1)
Quarter: 2020Q1

REPORT INFORMATION
  Report Type: Report from Study
  Country: KR (occurrence: KR)
  Receive Date: 20200326
  Receipt Date: 20200326
  Transmission Date: 20200409
  Serious: Yes (Hospitalization, Other)
  Sender: FDA-Public Use
  Company Number: KR-ACCORD-177328

PATIENT

DRUGS (1)
  1. MITOMYCIN. [Suspect]
     Active Substance: MITOMYCIN
     Indication: COLORECTAL CANCER
     Dosage: 15 MG/M2 OF BODY SURFACE AREA IN 4,500 ML OF PHYSIOLOGICAL SALINE
     Route: 033

REACTIONS (1)
  - Infection [Unknown]
